FAERS Safety Report 4770685-9 (Version None)
Quarter: 2005Q3

REPORT INFORMATION
  Report Type: 
  Country: None (occurrence: None)
  Receive Date: 20050915
  Receipt Date: 20050907
  Transmission Date: 20060218
  Serious: Yes (Death, Hospitalization)
  Sender: FDA-Public Use
  Company Number: US-JNJFOC-20050902372

PATIENT
  Age: 21 Year
  Sex: Female

DRUGS (23)
  1. ACETAMINOPHEN [Suspect]
     Route: 048
  2. ACETAMINOPHEN [Suspect]
     Indication: SUICIDE ATTEMPT
     Route: 048
  3. FLUOXETINE [Suspect]
     Indication: SUICIDE ATTEMPT
     Route: 048
  4. AMITRIPTYLINE HCL [Suspect]
     Indication: SUICIDE ATTEMPT
     Route: 048
  5. IBUPROFEN [Concomitant]
  6. IBUPROFEN [Concomitant]
  7. IBUPROFEN [Concomitant]
  8. IBUPROFEN [Concomitant]
  9. IBUPROFEN [Concomitant]
  10. IBUPROFEN [Concomitant]
  11. PROMETHAZINE/CODEINE [Concomitant]
  12. PROMETHAZINE/CODEINE [Concomitant]
  13. ACETAMINOPHEN/ISOMETHEPTENE/DICHLORALPHENAZONE [Concomitant]
  14. AVLIMIL [Concomitant]
  15. FROVA [Concomitant]
  16. SUMATRIPTAN SUCCINATE [Concomitant]
  17. ACETAMINOPHEN/ASPIRIN [Concomitant]
  18. ACETAMINOPHEN/ASPIRIN [Concomitant]
  19. ACETAMINOPHEN/ASPIRIN [Concomitant]
  20. ACETAMINOPHEN/ASPIRIN [Concomitant]
  21. ALBUTEROL [Concomitant]
  22. ORAL CONTRACEPTIVES [Concomitant]
     Route: 048
  23. ALCOHOLIC MALT BEVERAGE [Concomitant]
     Route: 048

REACTIONS (5)
  - COMPLETED SUICIDE [None]
  - HEPATIC NECROSIS [None]
  - INTENTIONAL MISUSE [None]
  - METABOLIC ACIDOSIS [None]
  - MYOGLOBINURIA [None]
